APPROVED DRUG PRODUCT: PREFRIN-A
Active Ingredient: PHENYLEPHRINE HYDROCHLORIDE; PYRILAMINE MALEATE
Strength: 0.12%;0.1%
Dosage Form/Route: SOLUTION/DROPS;OPHTHALMIC
Application: N007953 | Product #001
Applicant: ALLERGAN PHARMACEUTICAL
Approved: Approved Prior to Jan 1, 1982 | RLD: No | RS: No | Type: DISCN